FAERS Safety Report 20309848 (Version 1)
Quarter: 2022Q1

REPORT INFORMATION
  Report Type: Spontaneous
  Country: US (occurrence: None)
  Receive Date: 20220107
  Receipt Date: 20220107
  Transmission Date: 20220423
  Serious: Yes (Death)
  Sender: FDA-Public Use
  Company Number: None

PATIENT
  Age: 63 Year
  Sex: Male

DRUGS (2)
  1. CASIRIVIMAB [Suspect]
     Active Substance: CASIRIVIMAB
     Indication: Coronavirus infection
     Dosage: OTHER FREQUENCY : ONCE;?
     Route: 041
     Dates: start: 20220105, end: 20220105
  2. IMDEVIMAB [Suspect]
     Active Substance: IMDEVIMAB
     Indication: Coronavirus infection
     Dosage: OTHER FREQUENCY : ONCE;?
     Route: 041
     Dates: start: 20220105, end: 20220105

REACTIONS (3)
  - Unresponsive to stimuli [None]
  - Cardiac arrest [None]
  - Death [None]

NARRATIVE: CASE EVENT DATE: 20220105
